FAERS Safety Report 6977206-0 (Version None)
Quarter: 2010Q3

REPORT INFORMATION
  Report Type: 
  Country: None (occurrence: None)
  Receive Date: 20100910
  Receipt Date: 20100830
  Transmission Date: 20110219
  Serious: Yes (Hospitalization)
  Sender: FDA-Public Use
  Company Number: DE-ABBOTT-10P-062-0666850-00

PATIENT
  Age: 75 Year
  Sex: Male
  Weight: 85.5 kg

DRUGS (1)
  1. ZEMPLAR [Suspect]
     Indication: HYPERPARATHYROIDISM SECONDARY
     Dosage: 5 MCG PER WEEK
     Route: 042
     Dates: start: 20100312

REACTIONS (2)
  - IIIRD NERVE PARESIS [None]
  - POLYNEUROPATHY [None]
